FAERS Safety Report 23156182 (Version 1)
Quarter: 2023Q4

REPORT INFORMATION
  Report Type: Spontaneous
  Country: US (occurrence: None)
  Receive Date: 20231107
  Receipt Date: 20231107
  Transmission Date: 20240109
  Serious: No
  Sender: FDA-Public Use
  Company Number: US-ROCHE-3211164

PATIENT
  Sex: Male
  Weight: 98.972 kg

DRUGS (1)
  1. CATHFLO ACTIVASE [Suspect]
     Active Substance: ALTEPLASE
     Indication: Device occlusion
     Route: 042
     Dates: start: 20221029

REACTIONS (2)
  - Product administration error [Unknown]
  - No adverse event [Unknown]
